FAERS Safety Report 6108780-4 (Version None)
Quarter: 2009Q1

REPORT INFORMATION
  Report Type: 
  Country: None (occurrence: None)
  Receive Date: 20090310
  Receipt Date: 20090303
  Transmission Date: 20090719
  Serious: Yes (Hospitalization, Other)
  Sender: FDA-Public Use
  Company Number: US-BAYER-200912233NA

PATIENT
  Age: 20 Year
  Sex: Female
  Weight: 57 kg

DRUGS (13)
  1. YAZ [Suspect]
     Indication: ACNE
     Dosage: AS USED: 1 DF
     Route: 048
     Dates: start: 20080901, end: 20090105
  2. LEXAPRO [Concomitant]
  3. NASONEX [Concomitant]
  4. OMEPRAZOLE [Concomitant]
  5. OXYCONTIN [Concomitant]
     Dosage: TOTAL DAILY DOSE: 20 MG
  6. PERCOCET [Concomitant]
  7. POLYETHYLENE GLYCOL [Concomitant]
  8. PROMETHAZINE [Concomitant]
  9. TORADOL [Concomitant]
  10. VENTOLIN [Concomitant]
  11. WARFARIN SODIUM [Concomitant]
  12. XANAX [Concomitant]
  13. MULTIVITAMINS PLUS IRON [Concomitant]

REACTIONS (2)
  - HEADACHE [None]
  - INTRACRANIAL VENOUS SINUS THROMBOSIS [None]
